FAERS Safety Report 10029959 (Version 1)
Quarter: 2014Q1

REPORT INFORMATION
  Report Type: Spontaneous
  Country: US (occurrence: US)
  Receive Date: 20140323
  Receipt Date: 20140323
  Transmission Date: 20141002
  Serious: No
  Sender: FDA-Public Use
  Company Number: US-ALLERGAN-1305373US

PATIENT
  Age: 56 Year
  Sex: Female

DRUGS (2)
  1. LATISSE 0.03% [Suspect]
     Indication: GROWTH OF EYELASHES
     Dosage: UNK UNK, QHS
     Route: 061
     Dates: start: 20130309, end: 20130309
  2. LATISSE 0.03% [Suspect]
     Dosage: 2 GTT, QHS
     Route: 061
     Dates: start: 201210, end: 201210

REACTIONS (5)
  - Pruritus [Unknown]
  - Erythema [Unknown]
  - Eyelid cyst [Unknown]
  - Eyelid cyst [Unknown]
  - Eye swelling [Unknown]
